FAERS Safety Report 9069902 (Version 1)
Quarter: 2013Q1

REPORT INFORMATION
  Report Type: Spontaneous
  Country: US (occurrence: US)
  Receive Date: 20130215
  Receipt Date: 20130215
  Transmission Date: 20140127
  Serious: Yes (Other)
  Sender: FDA-Public Use
  Company Number: US-ASTRAZENECA-2013SE09024

PATIENT
  Sex: 0

DRUGS (1)
  1. CASODEX [Suspect]
     Route: 048

REACTIONS (4)
  - Syncope [Unknown]
  - Hyperhidrosis [Unknown]
  - Hot flush [Unknown]
  - Dizziness [Unknown]
